FAERS Safety Report 5958910-X (Version None)
Quarter: 2008Q4

REPORT INFORMATION
  Report Type: 
  Country: None (occurrence: None)
  Receive Date: 20081118
  Receipt Date: 20081103
  Transmission Date: 20090506
  Serious: Yes (Death)
  Sender: FDA-Public Use
  Company Number: KADN20080382

PATIENT
  Age: 49 Year
  Sex: Female

DRUGS (2)
  1. KADIAN [Suspect]
     Indication: BACK PAIN
     Dosage: 30 MG, 1 IN 12 HR, ORAL
     Route: 048
     Dates: start: 20081013
  2. MOBIC [Suspect]
     Indication: BACK PAIN
     Dosage: 7.5 MG,1 IN 24 HR,ORAL
     Route: 048

REACTIONS (1)
  - DEATH [None]
